FAERS Safety Report 7599709-0 (Version None)
Quarter: 2011Q3

REPORT INFORMATION
  Report Type: 
  Country: None (occurrence: None)
  Receive Date: 20110711
  Receipt Date: 20110628
  Transmission Date: 20111222
  Serious: Yes (Hospitalization, Other)
  Sender: FDA-Public Use
  Company Number: US-BAYER-2011-042403

PATIENT
  Sex: Male

DRUGS (4)
  1. SORAFENIB (RAF KINASE INHIBITOR) [Suspect]
     Dosage: DOSE INCREASED
     Dates: start: 20110601
  2. SORAFENIB (RAF KINASE INHIBITOR) [Suspect]
     Dosage: 200 MG, BID
  3. SORAFENIB (RAF KINASE INHIBITOR) [Suspect]
     Dosage: DOSE DECREASED
     Dates: start: 20110601
  4. SORAFENIB (RAF KINASE INHIBITOR) [Suspect]
     Indication: HEPATIC NEOPLASM MALIGNANT
     Dosage: 400 MG, BID
     Dates: start: 20110429

REACTIONS (8)
  - SCROTAL PAIN [None]
  - ABDOMINAL PAIN [None]
  - RASH [None]
  - GENITAL RASH [None]
  - FLUID RETENTION [None]
  - MELAENA [None]
  - STOMATITIS [None]
  - DRY MOUTH [None]
